FAERS Safety Report 4941907-6 (Version None)
Quarter: 2006Q1

REPORT INFORMATION
  Report Type: 
  Country: None (occurrence: None)
  Receive Date: 20060313
  Receipt Date: 20050601
  Transmission Date: 20060701
  Serious: Yes (Hospitalization, Other)
  Sender: FDA-Public Use
  Company Number: US-MERCK-0506USA00708

PATIENT
  Age: 71 Year
  Sex: Female
  Weight: 90 kg

DRUGS (1)
  1. VIOXX [Suspect]
     Indication: ARTHRITIS
     Route: 048
     Dates: start: 19980101, end: 20020429

REACTIONS (54)
  - ABDOMINAL PAIN [None]
  - ACTINIC KERATOSIS [None]
  - ANGINA UNSTABLE [None]
  - AORTIC VALVE STENOSIS [None]
  - ARTHRALGIA [None]
  - ASTEATOSIS [None]
  - BLOOD GLUCOSE INCREASED [None]
  - BLOOD PRESSURE INCREASED [None]
  - BLOOD TRIGLYCERIDES INCREASED [None]
  - BRONCHOSPASM [None]
  - BUNDLE BRANCH BLOCK LEFT [None]
  - BUNDLE BRANCH BLOCK RIGHT [None]
  - CARDIOVASCULAR DISORDER [None]
  - CAROTID ARTERY STENOSIS [None]
  - CEREBRAL ATROPHY [None]
  - CEREBROVASCULAR ACCIDENT [None]
  - CEREBROVASCULAR DISORDER [None]
  - CONTRAST MEDIA REACTION [None]
  - CORONARY ARTERY DISEASE [None]
  - COUGH [None]
  - CRYING [None]
  - DEPRESSION [None]
  - DRUG INEFFECTIVE [None]
  - FALL [None]
  - GASTRITIS [None]
  - GASTRITIS EROSIVE [None]
  - GASTROOESOPHAGEAL REFLUX DISEASE [None]
  - HEPATIC STEATOSIS [None]
  - HIATUS HERNIA [None]
  - INCREASED BRONCHIAL SECRETION [None]
  - INTERTRIGO CANDIDA [None]
  - IODINE ALLERGY [None]
  - ISCHAEMIC STROKE [None]
  - LACUNAR INFARCTION [None]
  - LIPASE INCREASED [None]
  - MUSCLE SPASMS [None]
  - MYOCARDIAL INFARCTION [None]
  - NASOPHARYNGEAL DISORDER [None]
  - NAUSEA [None]
  - NECK INJURY [None]
  - NECK PAIN [None]
  - ORGAN FAILURE [None]
  - OSTEOARTHRITIS [None]
  - OSTEOPOROSIS [None]
  - PEPTIC ULCER [None]
  - PULMONARY EMBOLISM [None]
  - RASH [None]
  - RENAL ATROPHY [None]
  - TENDONITIS [None]
  - THROMBOSIS [None]
  - TRANSIENT ISCHAEMIC ATTACK [None]
  - URINARY TRACT INFECTION [None]
  - VAGINAL CANDIDIASIS [None]
  - WHEEZING [None]
